FAERS Safety Report 5104443-2 (Version None)
Quarter: 2006Q3

REPORT INFORMATION
  Report Type: 
  Country: None (occurrence: None)
  Receive Date: 20060731
  Receipt Date: 20060515
  Transmission Date: 20061208
  Serious: Yes (Hospitalization)
  Sender: FDA-Public Use
  Company Number: US-JNJFOC-20060206146

PATIENT
  Age: 54 Year
  Sex: Female
  Weight: 97.5234 kg

DRUGS (2)
  1. RISPERDAL CONSTA [Suspect]
     Indication: SCHIZOAFFECTIVE DISORDER
     Dosage: 50 MG, 1 IN 2 WEEK, INTRAMUSCULAR
     Route: 030
     Dates: start: 20050101
  2. RISPERDAL [Suspect]
     Indication: SCHIZOAFFECTIVE DISORDER
     Dosage: ORAL
     Route: 048

REACTIONS (4)
  - DELUSION [None]
  - DEPRESSION [None]
  - HALLUCINATION [None]
  - SOCIAL AVOIDANT BEHAVIOUR [None]
